FAERS Safety Report 10239047 (Version 1)
Quarter: 2014Q2

REPORT INFORMATION
  Report Type: Spontaneous
  Country: GB (occurrence: GB)
  Receive Date: 20140616
  Receipt Date: 20140616
  Transmission Date: 20141212
  Serious: Yes (Other)
  Sender: FDA-Public Use
  Company Number: GB-PFIZER INC-2014158448

PATIENT
  Age: 74 Year
  Sex: Male
  Weight: 63.5 kg

DRUGS (2)
  1. LIPITOR [Suspect]
     Indication: HYPERCHOLESTEROLAEMIA
     Dosage: 10 MG, UNK
     Route: 048
     Dates: start: 20130201, end: 20131107
  2. COENZYME Q10 [Concomitant]
     Dosage: 30 MG, UNK
     Dates: start: 20110205

REACTIONS (3)
  - Myalgia [Recovering/Resolving]
  - Joint stiffness [Recovered/Resolved]
  - Asthenia [Recovering/Resolving]
